FAERS Safety Report 9200331 (Version 3)
Quarter: 2013Q2

REPORT INFORMATION
  Report Type: Spontaneous
  Country: JP (occurrence: JP)
  Receive Date: 20130329
  Receipt Date: 20130521
  Transmission Date: 20140414
  Serious: Yes (Life-Threatening, Other)
  Sender: FDA-Public Use
  Company Number: JP-BRISTOL-MYERS SQUIBB COMPANY-16402729

PATIENT
  Age: 57 Year
  Sex: Male

DRUGS (17)
  1. AVAPRO [Suspect]
     Indication: HYPERTENSION
     Dosage: INTERR:13JAN12,06FEB12?RESTART:MAR12?RESTART: JAN13?INTERR:8MAR13?CONT
     Route: 048
     Dates: start: 20110905, end: 20130308
  2. EUGLUCAN [Concomitant]
  3. MEDET [Concomitant]
  4. BEZATOL [Concomitant]
  5. MYSLEE [Concomitant]
  6. ACTOS [Concomitant]
     Indication: DIABETES MELLITUS
     Route: 048
     Dates: start: 20110905
  7. BASEN [Concomitant]
     Indication: DIABETES MELLITUS
     Route: 048
     Dates: start: 20110905
  8. ATELEC [Concomitant]
  9. PLAVIX [Concomitant]
     Indication: ANGINA PECTORIS
     Route: 048
     Dates: start: 20110905
  10. LIVALO [Concomitant]
  11. MICARDIS [Concomitant]
  12. BAYASPIRIN [Concomitant]
     Indication: ANGINA PECTORIS
     Route: 048
     Dates: start: 20110905
  13. CRESTOR [Concomitant]
     Indication: HYPERLIPIDAEMIA
     Route: 048
     Dates: start: 20110905
  14. ADALAT-CR [Concomitant]
     Indication: HYPERTENSION
     Dosage: ALSO TAKEN IN 40MG DOSE?05SEP2011-13JAN2012?18JAN2012
     Route: 048
     Dates: start: 20110905
  15. AMARYL [Concomitant]
     Indication: DIABETES MELLITUS
     Route: 048
     Dates: start: 20110905
  16. METGLUCO [Concomitant]
     Indication: DIABETES MELLITUS
     Route: 048
     Dates: start: 20110905
  17. HALCION [Concomitant]
     Indication: INSOMNIA
     Route: 048
     Dates: start: 20110905

REACTIONS (2)
  - Anaemia [Recovered/Resolved]
  - Calculus urinary [Unknown]
